FAERS Safety Report 10738512 (Version 2)
Quarter: 2015Q1

REPORT INFORMATION
  Report Type: Spontaneous
  Country: US (occurrence: US)
  Receive Date: 20150126
  Receipt Date: 20150326
  Transmission Date: 20150721
  Serious: Yes (Hospitalization)
  Sender: FDA-Public Use
  Company Number: US-GLAXOSMITHKLINE-US2015008830

PATIENT
  Age: 62 Year
  Sex: Female

DRUGS (2)
  1. VOTRIENT [Suspect]
     Active Substance: PAZOPANIB HYDROCHLORIDE
     Indication: METASTATIC RENAL CELL CARCINOMA
     Dosage: 800 MG, QD
     Route: 065
     Dates: start: 20140930
  2. VOTRIENT [Suspect]
     Active Substance: PAZOPANIB HYDROCHLORIDE
     Indication: RENAL CANCER

REACTIONS (3)
  - Influenza [Not Recovered/Not Resolved]
  - Abnormal behaviour [Recovered/Resolved]
  - Pyrexia [Not Recovered/Not Resolved]

NARRATIVE: CASE EVENT DATE: 201411
